FAERS Safety Report 20503239 (Version 2)
Quarter: 2022Q2

REPORT INFORMATION
  Report Type: Report from Study
  Country: US (occurrence: US)
  Receive Date: 20220222
  Receipt Date: 20220408
  Transmission Date: 20220721
  Serious: No
  Sender: FDA-Public Use
  Company Number: US-BIONICAL EMAS-2022ETO000026

PATIENT

DRUGS (1)
  1. ALKINDI SPRINKLE [Suspect]
     Active Substance: HYDROCORTISONE
     Indication: Adrenal insufficiency
     Dosage: 1 MG, TID
     Route: 048
     Dates: start: 20220201

REACTIONS (5)
  - Product use complaint [Unknown]
  - Infantile spitting up [Unknown]
  - Irritability [Unknown]
  - Vomiting [Unknown]
  - Incorrect dose administered [Unknown]
